FAERS Safety Report 4803218-9 (Version None)
Quarter: 2005Q4

REPORT INFORMATION
  Report Type: 
  Country: None (occurrence: None)
  Receive Date: 20051013
  Receipt Date: 20050927
  Transmission Date: 20060501
  Serious: Yes (Hospitalization)
  Sender: FDA-Public Use
  Company Number: USA0509109269

PATIENT
  Age: 56 Year
  Sex: Female

DRUGS (5)
  1. HUMULIN N [Suspect]
     Indication: DIABETES MELLITUS
     Dates: start: 19850301
  2. HUMULIN R [Suspect]
     Indication: DIABETES MELLITUS
     Dates: start: 19850301
  3. ILETIN I [Suspect]
     Indication: DIABETES MELLITUS
     Dates: start: 19850701
  4. ILETIN [Suspect]
     Indication: DIABETES MELLITUS
     Dates: end: 19850701
  5. ILETIN I [Suspect]
     Indication: DIABETES MELLITUS
     Dates: start: 19850701

REACTIONS (8)
  - DIPLOPIA [None]
  - FACIAL PAIN [None]
  - HEADACHE [None]
  - IIIRD NERVE PARALYSIS [None]
  - INFLUENZA LIKE ILLNESS [None]
  - NERVOUS SYSTEM DISORDER [None]
  - TRIGEMINAL NEURALGIA [None]
  - VOMITING [None]
